FAERS Safety Report 5202223-0 (Version None)
Quarter: 2007Q1

REPORT INFORMATION
  Report Type: 
  Country: None (occurrence: None)
  Receive Date: 20070109
  Receipt Date: 20070105
  Transmission Date: 20070707
  Serious: Yes (Other)
  Sender: FDA-Public Use
  Company Number: US-GLAXOSMITHKLINE-A0631120A

PATIENT
  Age: 26 Year
  Sex: Male

DRUGS (14)
  1. GOODY'S EXTRA STRENGTH HEADACHE POWDER [Suspect]
     Indication: HEADACHE
     Route: 048
  2. TRILEPTAL [Concomitant]
  3. CLONAZEPAM [Concomitant]
     Dosage: 1MG THREE TIMES PER DAY
  4. VYTORIN [Concomitant]
  5. NABUMETONE [Concomitant]
  6. PREVACID [Concomitant]
  7. NASACORT AQ [Concomitant]
  8. PROVENTIL [Concomitant]
  9. SPIRIVA [Concomitant]
  10. LISINOPRIL [Concomitant]
  11. MIGRAINE MEDICATION [Concomitant]
  12. WELLBUTRIN [Concomitant]
  13. ADVAIR DISKUS 100/50 [Concomitant]
  14. RITALIN [Concomitant]

REACTIONS (5)
  - DEPENDENCE [None]
  - HEADACHE [None]
  - HYPERTENSION [None]
  - INTENTIONAL DRUG MISUSE [None]
  - OVERDOSE [None]
